FAERS Safety Report 4374593-7 (Version None)
Quarter: 2004Q2

REPORT INFORMATION
  Report Type: 
  Country: None (occurrence: None)
  Receive Date: 20040609
  Receipt Date: 20020905
  Transmission Date: 20050107
  Serious: Yes (Hospitalization, Other)
  Sender: FDA-Public Use
  Company Number: US-MERCK-0209USA00468

PATIENT
  Age: 58 Year
  Sex: Female
  Weight: 64 kg

DRUGS (10)
  1. ELAVIL [Concomitant]
     Indication: SLEEP DISORDER THERAPY
     Route: 048
     Dates: start: 20000929
  2. SOMA [Concomitant]
     Route: 048
     Dates: start: 20000929, end: 20010801
  3. SOMA [Concomitant]
     Route: 048
     Dates: start: 20030801
  4. CYANOCOBALAMIN [Concomitant]
     Indication: ANAEMIA
     Route: 030
     Dates: start: 20000804
  5. PREMARIN [Concomitant]
     Route: 065
  6. INFED [Concomitant]
     Indication: ANAEMIA
     Route: 030
     Dates: start: 20000901
  7. ROBAXIN [Concomitant]
     Route: 048
     Dates: start: 20000508
  8. PRILOSEC [Concomitant]
     Route: 065
  9. VIOXX [Suspect]
     Indication: OSTEOARTHRITIS
     Route: 048
     Dates: start: 20000101, end: 20010801
  10. VIOXX [Suspect]
     Route: 048
     Dates: start: 20010801, end: 20010101

REACTIONS (32)
  - ABDOMINAL DISTENSION [None]
  - ANAEMIA [None]
  - ANXIETY [None]
  - ARTERIOSPASM CORONARY [None]
  - BILIARY NEOPLASM [None]
  - BLOOD ALBUMIN DECREASED [None]
  - BRONCHIECTASIS [None]
  - CHOLELITHIASIS [None]
  - CHRONIC OBSTRUCTIVE AIRWAYS DISEASE [None]
  - COLLAPSE OF LUNG [None]
  - CONSTIPATION [None]
  - CORONARY ARTERY DISEASE [None]
  - DIVERTICULUM [None]
  - DIVERTICULUM INTESTINAL [None]
  - DRUG INEFFECTIVE [None]
  - DYSURIA [None]
  - EMPHYSEMA [None]
  - FEAR OF DISEASE [None]
  - GASTRITIS HAEMORRHAGIC [None]
  - HEPATITIS [None]
  - LUNG NEOPLASM [None]
  - MYCOBACTERIUM AVIUM COMPLEX INFECTION [None]
  - MYOCARDIAL INFARCTION [None]
  - NAUSEA [None]
  - OEDEMA PERIPHERAL [None]
  - PAIN IN EXTREMITY [None]
  - PRURITUS GENERALISED [None]
  - PULMONARY CALCIFICATION [None]
  - RASH [None]
  - UPPER RESPIRATORY TRACT INFECTION [None]
  - URINARY TRACT INFECTION [None]
  - WHITE BLOOD CELL COUNT DECREASED [None]
